FAERS Safety Report 8110934-2 (Version None)
Quarter: 2012Q1

REPORT INFORMATION
  Report Type: 
  Country: None (occurrence: None)
  Receive Date: 20120203
  Receipt Date: 20110323
  Transmission Date: 20120608
  Serious: Yes (Other)
  Sender: FDA-Public Use
  Company Number: US-GLAXOSMITHKLINE-A0876337A

PATIENT
  Age: 36 Year
  Sex: Female
  Weight: 69.1 kg

DRUGS (4)
  1. FOLIC ACID [Concomitant]
  2. LAMOTRIGINE [Suspect]
     Indication: CONVULSION
     Route: 048
     Dates: start: 20081001
  3. LAMOTRIGINE [Suspect]
     Dosage: 350MG TWICE PER DAY
     Route: 048
  4. MULTI-VITAMINS [Concomitant]

REACTIONS (5)
  - DRUG INEFFECTIVE [None]
  - AURA [None]
  - HEADACHE [None]
  - MATERNAL EXPOSURE DURING PREGNANCY [None]
  - CONVULSION [None]
